FAERS Safety Report 20860326 (Version 1)
Quarter: 2022Q2

REPORT INFORMATION
  Report Type: Spontaneous
  Country: None (occurrence: US)
  Receive Date: 20220523
  Receipt Date: 20220523
  Transmission Date: 20220720
  Serious: No
  Sender: FDA-Public Use
  Company Number: US-Ajanta Pharma USA Inc.-2129036

PATIENT
  Age: 40 Year
  Sex: Female
  Weight: 98.636 kg

DRUGS (7)
  1. CHLORTHALIDONE [Suspect]
     Active Substance: CHLORTHALIDONE
     Indication: Product used for unknown indication
     Dates: start: 202202
  2. KORLYM [Suspect]
     Active Substance: MIFEPRISTONE
     Dates: start: 20220325, end: 20220501
  3. SPIRONOLACTONE [Suspect]
     Active Substance: SPIRONOLACTONE
  4. LABETALOL [Concomitant]
     Active Substance: LABETALOL\LABETALOL HYDROCHLORIDE
  5. VITAMIN D3 [Concomitant]
     Active Substance: CHOLECALCIFEROL
  6. ARMOUR THYROID [Concomitant]
     Active Substance: THYROID, PORCINE
  7. VITAMIN B12 [Concomitant]
     Active Substance: CYANOCOBALAMIN

REACTIONS (13)
  - Malaise [Unknown]
  - Uterine leiomyoma [Unknown]
  - Pruritus [Recovered/Resolved]
  - Pain [Unknown]
  - Chest discomfort [Unknown]
  - Pain in extremity [Unknown]
  - Axillary pain [Unknown]
  - Urinary incontinence [Unknown]
  - Hyperhidrosis [Unknown]
  - Blood potassium decreased [Unknown]
  - Constipation [Recovered/Resolved]
  - Headache [Not Recovered/Not Resolved]
  - Rash erythematous [Recovering/Resolving]

NARRATIVE: CASE EVENT DATE: 20220101
